FAERS Safety Report 5036558-1 (Version None)
Quarter: 2006Q2

REPORT INFORMATION
  Report Type: 
  Country: None (occurrence: None)
  Receive Date: 20060614
  Receipt Date: 20051214
  Transmission Date: 20061013
  Serious: Yes (Hospitalization)
  Sender: FDA-Public Use
  Company Number: 430051M05USA

PATIENT
  Age: 26 Year
  Sex: Female
  Weight: 83.6 kg

DRUGS (15)
  1. NOVANTRONE [Suspect]
     Indication: ACUTE MYELOID LEUKAEMIA
     Dosage: 15 MG, INTRAVENOUS
     Route: 042
     Dates: start: 20050601, end: 20050605
  2. CEP-701(INVESTIGATIONAL DRUG) [Suspect]
     Dosage: 160 MG, 1 IN 1 DAYS
     Dates: start: 20050613
  3. ETOPOSIDE [Suspect]
     Dosage: 1.91 MG, INTRAVENOUS
     Route: 042
     Dates: start: 20050601, end: 20050605
  4. CYTARABINE [Suspect]
     Dosage: 1.9 G, INTRAVENOUS
     Route: 042
     Dates: start: 20050601, end: 20050605
  5. MEROPENEM(MEROPENEM) [Concomitant]
  6. SOLU-MEDROL [Concomitant]
  7. VALACYCLOVIR(VALACYCLOVIR /01269701/) [Concomitant]
  8. PANTOPRAZOLE SODIUM [Concomitant]
  9. BENZONATATE [Concomitant]
  10. SEVELAMER(SEVELAMER) [Concomitant]
  11. ALLOPURINOL [Concomitant]
  12. LO/OVRAL(EUGYNON) [Concomitant]
  13. ONDANSETRON [Concomitant]
  14. DILAUDID [Concomitant]
  15. RENAGEL [Concomitant]

REACTIONS (2)
  - ALANINE AMINOTRANSFERASE INCREASED [None]
  - ASPARTATE AMINOTRANSFERASE INCREASED [None]
